FAERS Safety Report 22601455 (Version 2)
Quarter: 2023Q4

REPORT INFORMATION
  Report Type: Report from Study
  Country: US (occurrence: US)
  Receive Date: 20230614
  Receipt Date: 20231204
  Transmission Date: 20240109
  Serious: Yes (Other)
  Sender: FDA-Public Use
  Company Number: US-ABBVIE-5290059

PATIENT
  Age: 65 Year
  Sex: Female
  Weight: 58.059 kg

DRUGS (1)
  1. CREON [Suspect]
     Active Substance: PANCRELIPASE AMYLASE\PANCRELIPASE LIPASE\PANCRELIPASE PROTEASE
     Indication: Dyspepsia
     Dosage: TIME INTERVAL: 0.33333333 DAYS: CAPSULE; DR?FORM STRENGTH: 36000 UNIT
     Route: 048
     Dates: start: 20220302

REACTIONS (2)
  - Lung neoplasm malignant [Not Recovered/Not Resolved]
  - Lung neoplasm malignant [Recovered/Resolved]

NARRATIVE: CASE EVENT DATE: 20230101
